FAERS Safety Report 9309608 (Version 1)
Quarter: 2013Q2

REPORT INFORMATION
  Report Type: Spontaneous
  Country: US (occurrence: US)
  Receive Date: 20130525
  Receipt Date: 20130525
  Transmission Date: 20140414
  Serious: No
  Sender: FDA-Public Use
  Company Number: US-BRISTOL-MYERS SQUIBB COMPANY-17483215

PATIENT
  Age: 60 Year
  Sex: Male
  Weight: 87.08 kg

DRUGS (5)
  1. BYDUREON [Suspect]
     Indication: TYPE 2 DIABETES MELLITUS
     Dosage: EXENATIDE LONG ACTING RELEASE
     Route: 058
     Dates: start: 201301
  2. NOVOLOG [Concomitant]
     Indication: TYPE 2 DIABETES MELLITUS
  3. LANTUS [Concomitant]
     Indication: TYPE 2 DIABETES MELLITUS
  4. GLIPIZIDE [Concomitant]
     Indication: TYPE 2 DIABETES MELLITUS
     Route: 048
  5. TORADOL [Concomitant]
     Indication: BACK PAIN

REACTIONS (2)
  - Abdominal tenderness [Not Recovered/Not Resolved]
  - Joint stiffness [Not Recovered/Not Resolved]
